FAERS Safety Report 9523873 (Version 1)
Quarter: 2013Q1

REPORT INFORMATION
  Report Type: Spontaneous
  Country: US (occurrence: None)
  Receive Date: 20130305
  Receipt Date: 20130305
  Transmission Date: 20140127
  Serious: Yes (Hospitalization)
  Sender: FDA-Public Use
  Company Number: 163-21880-12031840

PATIENT
  Age: 59 Year
  Sex: Male
  Weight: 133.36 kg

DRUGS (10)
  1. VITAMIN E (TOCOPHEROL) (UNKNOWN) [Concomitant]
  2. REVLIMID [Suspect]
     Indication: CHRONIC LYMPHOCYTIC LEUKAEMIA
     Dosage: 10 MG, QD X 21 DAYS, PO
     Route: 048
     Dates: start: 20110928
  3. REVLIMID [Suspect]
     Indication: LYMPHOMA
     Dosage: 10 MG, QD X 21 DAYS, PO
     Route: 048
     Dates: start: 20110928
  4. ASA (ACETYLSALICYLIC ACID) (UNKNOWN) [Concomitant]
  5. FISH OIL (FISH OIL) (UNKNOWN) [Concomitant]
  6. HYZAAR (HYZAAR) (UNKNOWN) [Concomitant]
  7. MULTIVITAMINS (MULTIVITAMINS) (UNKNOWN) [Concomitant]
  8. PROTONIX (UNKNOWN) [Concomitant]
  9. RITUXAN (RITUXIMAB) (UNKNOWN) [Concomitant]
  10. TRICOR (FENOFIBRATE) (UNKNOWN) [Concomitant]

REACTIONS (1)
  - Pneumonia [None]
